FAERS Safety Report 21169222 (Version 1)
Quarter: 2022Q3

REPORT INFORMATION
  Report Type: Spontaneous
  Country: US (occurrence: US)
  Receive Date: 20220804
  Receipt Date: 20220804
  Transmission Date: 20221026
  Serious: Yes (Other)
  Sender: FDA-Public Use
  Company Number: US-CELLTRION INC.-2022US012231

PATIENT

DRUGS (2)
  1. TRUXIMA [Suspect]
     Active Substance: RITUXIMAB-ABBS
     Indication: Retroperitoneal neoplasm
     Dosage: 1000 MILLIGRAM
  2. TRUXIMA [Suspect]
     Active Substance: RITUXIMAB-ABBS
     Indication: Anaemia

REACTIONS (3)
  - Retroperitoneal neoplasm [Unknown]
  - Anaemia [Unknown]
  - Off label use [Unknown]
